APPROVED DRUG PRODUCT: DURAQUIN
Active Ingredient: QUINIDINE GLUCONATE
Strength: 330MG
Dosage Form/Route: TABLET, EXTENDED RELEASE;ORAL
Application: N017917 | Product #001
Applicant: WARNER CHILCOTT DIV WARNER LAMBERT CO
Approved: Approved Prior to Jan 1, 1982 | RLD: No | RS: No | Type: DISCN